FAERS Safety Report 8502950-3 (Version None)
Quarter: 2012Q3

REPORT INFORMATION
  Report Type: 
  Country: None (occurrence: None)
  Receive Date: 20120711
  Receipt Date: 20120706
  Transmission Date: 20120928
  Serious: Yes (Hospitalization)
  Sender: FDA-Public Use
  Company Number: FR-PFIZER INC-2012077811

PATIENT
  Age: 36 Year
  Sex: Male
  Weight: 64.5 kg

DRUGS (27)
  1. OFLOXACIN [Concomitant]
     Dosage: UNK
  2. TAZOBACTAM [Concomitant]
     Dosage: UNK
     Dates: start: 20120209, end: 20120215
  3. DEPO-MEDROL [Concomitant]
     Dosage: 40 MG, UNK
     Route: 037
     Dates: start: 20120207
  4. TAZOBACTAM [Concomitant]
     Dosage: UNK
     Dates: start: 20120217
  5. CYTARABINE [Concomitant]
     Dosage: UNK
     Route: 037
     Dates: start: 20120209, end: 20120212
  6. METHOTREXATE [Concomitant]
     Dosage: UNK
     Route: 037
     Dates: start: 20120209
  7. ROCEPHIN [Concomitant]
     Dosage: UNK
     Dates: start: 20120201, end: 20120209
  8. TAZOBACTAM [Concomitant]
     Indication: ENCEPHALITIS
     Dosage: 12 G, DAILY
     Dates: start: 20120203, end: 20120203
  9. METHOTREXATE [Concomitant]
     Dosage: 15 MG, UNK
     Route: 037
     Dates: start: 20120207
  10. HYDREA [Concomitant]
     Dosage: UNK
  11. VFEND [Suspect]
     Indication: ASPERGILLOSIS
     Dosage: 560 MG, UNK
     Dates: start: 20120213, end: 20120213
  12. DEPO-MEDROL [Concomitant]
     Dosage: UNK
     Route: 037
     Dates: start: 20120209
  13. VFEND [Suspect]
     Dosage: 600 MG, UNK
     Dates: start: 20120217, end: 20120217
  14. NEXIUM [Concomitant]
     Dosage: 40 MG, UNK
     Dates: start: 20120217, end: 20120223
  15. CYTARABINE [Concomitant]
     Dosage: UNK
     Dates: start: 20120128, end: 20120204
  16. VFEND [Suspect]
     Dosage: 400 MG, UNK
     Dates: start: 20120218, end: 20120223
  17. FLAGYL [Concomitant]
     Indication: BRAIN ABSCESS
     Dosage: UNK
     Dates: start: 20120203, end: 20120209
  18. CYTARABINE [Concomitant]
     Dosage: UNK
     Route: 037
     Dates: start: 20120207
  19. DAUNORUBICIN [Concomitant]
     Dosage: UNK
     Dates: start: 20120210, end: 20120211
  20. FASTURTEC [Concomitant]
     Dosage: UNK
  21. VFEND [Suspect]
     Dosage: 380 MG, UNK
     Dates: start: 20120214, end: 20120216
  22. ROCEPHIN [Concomitant]
     Indication: PYREXIA
     Dosage: UNK
     Dates: start: 20120127, end: 20120128
  23. ROVAMYCINE [Concomitant]
     Dosage: UNK
     Dates: start: 20120128, end: 20120201
  24. CYTARABINE [Concomitant]
     Dosage: UNK
     Dates: start: 20120210, end: 20120212
  25. VFEND [Suspect]
     Dosage: 200 MG, UNK
     Dates: start: 20120224, end: 20120224
  26. VANCOMYCIN [Concomitant]
     Indication: PYREXIA
     Dosage: UNK
     Dates: start: 20120212, end: 20120220
  27. DAUNORUBICIN [Concomitant]
     Dosage: UNK
     Dates: start: 20120130, end: 20120201

REACTIONS (3)
  - HALLUCINATION, VISUAL [None]
  - HALLUCINATION, AUDITORY [None]
  - COMA [None]
